FAERS Safety Report 8549530-1 (Version None)
Quarter: 2012Q3

REPORT INFORMATION
  Report Type: 
  Country: None (occurrence: None)
  Receive Date: 20120718
  Receipt Date: 20120710
  Transmission Date: 20120928
  Serious: Yes (Death)
  Sender: FDA-Public Use
  Company Number: FK201102069

PATIENT
  Sex: Male

DRUGS (11)
  1. METRONIDAZOLE [Suspect]
     Indication: PRODUCT USED FOR UNKNOWN INDICATION
  2. GENTAMICIN [Suspect]
     Indication: ABSCESS LIMB
     Dosage: INTRAVENOUS (NOT OTHERWISE SPECIFIED)
     Route: 042
  3. CLINDAMYCIN [Suspect]
     Indication: PRODUCT USED FOR UNKNOWN INDICATION
  4. IMMUNE GLOBULIN NOS [Suspect]
     Indication: SEPSIS
  5. OXACILLIN [Suspect]
     Indication: ABSCESS LIMB
  6. VANCOMYCIN [Suspect]
     Indication: ABSCESS LIMB
  7. TEICOPLANIN (TEICOPLANIN) [Suspect]
     Indication: SEPSIS
  8. FLUCONAZOLE [Suspect]
     Indication: SEPSIS
  9. CIPROFLOXACIN [Suspect]
     Indication: PRODUCT USED FOR UNKNOWN INDICATION
  10. PENICILLIN G, CRYSTALLINE-POTASSIUM [Suspect]
     Indication: ABSCESS LIMB
     Dosage: INTRAVENOUS (NOT OTHERWISE SPECIFIED)
     Route: 042
  11. AMIKACIN [Suspect]
     Indication: PRODUCT USED FOR UNKNOWN INDICATION

REACTIONS (11)
  - THROMBOSIS MESENTERIC VESSEL [None]
  - STAPHYLOCOCCAL SEPSIS [None]
  - VASCULITIS [None]
  - DRUG RESISTANCE [None]
  - NECROTISING COLITIS [None]
  - LEUKOPENIA [None]
  - NEUTROPHIL COUNT INCREASED [None]
  - KLEBSIELLA SEPSIS [None]
  - TOXIC EPIDERMAL NECROLYSIS [None]
  - THROMBOCYTOPENIA [None]
  - SEPTIC SHOCK [None]
